FAERS Safety Report 7148270-3 (Version None)
Quarter: 2010Q4

REPORT INFORMATION
  Report Type: 
  Country: None (occurrence: None)
  Receive Date: 20101209
  Receipt Date: 20101126
  Transmission Date: 20110411
  Serious: Yes (Hospitalization, Other)
  Sender: FDA-Public Use
  Company Number: PHHY2010US74841

PATIENT
  Sex: Female

DRUGS (27)
  1. GLEEVEC [Suspect]
     Indication: PARAPROTEINAEMIA
     Dosage: 400 MG
     Route: 048
     Dates: start: 20100601
  2. GLEEVEC [Suspect]
     Dosage: 400 MG DAILY
  3. FUROSEMIDE [Concomitant]
     Dosage: 80 MG
  4. FUROSEMIDE [Concomitant]
     Dosage: 40 MG DAILY
  5. ZAROXOLYN [Concomitant]
     Dosage: DAILY
  6. DIGOXIN [Concomitant]
     Indication: CORONARY ARTERY DISEASE
     Dosage: 0.25 MG DAILY
     Route: 048
     Dates: end: 20100730
  7. ALDACTONE [Concomitant]
     Dosage: 25 MG DAILY
     Route: 048
  8. NAPROSYN [Concomitant]
     Indication: PAIN
     Dosage: UNK
     Route: 048
  9. NAPROSYN [Concomitant]
     Indication: OSTEOARTHRITIS
  10. SYNTHROID [Concomitant]
     Dosage: 75 MCG DAILY
  11. PROCRIT [Concomitant]
     Dosage: 10000 UNITS
     Route: 058
  12. SELEGILINE [Concomitant]
     Dosage: 5 MG
  13. COLACE [Concomitant]
     Dosage: 100 MG
  14. MIRALAX [Concomitant]
     Dosage: 17 G DAILY
  15. PLAVIX [Concomitant]
     Dosage: 75 MG DAILY
  16. ASPIRIN [Concomitant]
     Dosage: 81 MG DAILY
  17. FOSAMAX [Concomitant]
  18. AMANTADINE HCL [Concomitant]
  19. COUMADIN [Concomitant]
  20. KLOR-CON [Concomitant]
  21. TOPROL-XL [Concomitant]
     Dosage: 100 MG DAILY
  22. TOPROL-XL [Concomitant]
     Dosage: 100 MG
  23. ATIVAN [Concomitant]
  24. PRILOSEC [Concomitant]
  25. HEPARIN [Concomitant]
  26. DOPAMINE [Concomitant]
  27. ANTIBIOTICS [Concomitant]
     Indication: URINARY TRACT INFECTION

REACTIONS (18)
  - APHASIA [None]
  - CARDIAC FAILURE CONGESTIVE [None]
  - CEREBRAL ATROPHY [None]
  - CEREBRAL ISCHAEMIA [None]
  - CHOLECYSTITIS ACUTE [None]
  - CONFUSIONAL STATE [None]
  - DECREASED APPETITE [None]
  - FATIGUE [None]
  - FLUID RETENTION [None]
  - LIVER DISORDER [None]
  - LUNG INFILTRATION [None]
  - MENTAL DISORDER [None]
  - NAUSEA [None]
  - PANCREATITIS [None]
  - RENAL IMPAIRMENT [None]
  - THERAPEUTIC AGENT TOXICITY [None]
  - URINARY TRACT INFECTION [None]
  - VOMITING [None]
